FAERS Safety Report 10367674 (Version 1)
Quarter: 2014Q3

REPORT INFORMATION
  Report Type: Spontaneous
  Country: US (occurrence: None)
  Receive Date: 20140806
  Receipt Date: 20140806
  Transmission Date: 20150326
  Serious: No
  Sender: FDA-Public Use
  Company Number: None

PATIENT
  Age: 55 Year
  Sex: Female
  Weight: 78.02 kg

DRUGS (1)
  1. DULOXETINE DELAYED-RELEASE [Suspect]
     Active Substance: DULOXETINE
     Indication: FIBROMYALGIA
     Route: 048
     Dates: start: 20140726, end: 20140804

REACTIONS (7)
  - Dizziness [None]
  - Sleep disorder [None]
  - Therapeutic response changed [None]
  - Nausea [None]
  - Tinnitus [None]
  - Lethargy [None]
  - Product substitution issue [None]

NARRATIVE: CASE EVENT DATE: 20140805
